FAERS Safety Report 7991065-9 (Version None)
Quarter: 2011Q4

REPORT INFORMATION
  Report Type: 
  Country: None (occurrence: None)
  Receive Date: 20111219
  Receipt Date: 20111213
  Transmission Date: 20120403
  Serious: Yes (Other)
  Sender: FDA-Public Use
  Company Number: US-ROCHE-792653

PATIENT
  Sex: Male
  Weight: 585.66 kg

DRUGS (1)
  1. ACCUTANE [Suspect]
     Indication: ACNE
     Route: 065
     Dates: start: 19970101, end: 19980331

REACTIONS (9)
  - CROHN'S DISEASE [None]
  - IMPAIRED HEALING [None]
  - GASTROOESOPHAGEAL REFLUX DISEASE [None]
  - IRRITABLE BOWEL SYNDROME [None]
  - ARTHRITIS [None]
  - ANAL FISSURE [None]
  - PERIRECTAL ABSCESS [None]
  - DEPRESSION [None]
  - INFLAMMATORY BOWEL DISEASE [None]
